FAERS Safety Report 5132640-9 (Version None)
Quarter: 2006Q4

REPORT INFORMATION
  Report Type: 
  Country: None (occurrence: None)
  Receive Date: 20061017
  Receipt Date: 20061003
  Transmission Date: 20070319
  Serious: Yes (Other)
  Sender: FDA-Public Use
  Company Number: GXKR2006CL05805

PATIENT
  Age: 1 Day
  Sex: Male
  Weight: 2.7 kg

DRUGS (3)
  1. PREDNISONE [Suspect]
     Dosage: TRANSPLACENTAL
     Route: 064
  2. CYCLOSPORINE [Concomitant]
  3. INSULIN (INSULIN) [Concomitant]

REACTIONS (3)
  - CAESAREAN SECTION [None]
  - DRUG EXPOSURE DURING PREGNANCY [None]
  - PREMATURE BABY [None]
